FAERS Safety Report 7378923-3 (Version None)
Quarter: 2011Q1

REPORT INFORMATION
  Report Type: 
  Country: None (occurrence: None)
  Receive Date: 20110328
  Receipt Date: 20110316
  Transmission Date: 20110831
  Serious: Yes (Other)
  Sender: FDA-Public Use
  Company Number: PHHY2011US22334

PATIENT
  Age: 41 Year
  Sex: Female

DRUGS (4)
  1. CITALOPRAM HYDROBROMIDE [Suspect]
     Indication: BREAST CANCER METASTATIC
  2. LETROZOLE [Suspect]
     Indication: BREAST CANCER METASTATIC
  3. FILGRASTIM [Suspect]
     Indication: BREAST CANCER METASTATIC
  4. LORAZEPAM [Suspect]
     Indication: BREAST CANCER METASTATIC

REACTIONS (1)
  - NEUTROPHIL PELGER-HUET ANOMALY PRESENT [None]
